FAERS Safety Report 7805931-8 (Version None)
Quarter: 2011Q4

REPORT INFORMATION
  Report Type: 
  Country: None (occurrence: None)
  Receive Date: 20111007
  Receipt Date: 20111007
  Transmission Date: 20120403
  Serious: Yes (Hospitalization)
  Sender: FDA-Public Use
  Company Number: None

PATIENT
  Sex: Male

DRUGS (1)
  1. SUTENT [Suspect]
     Indication: RENAL CELL CARCINOMA
     Dosage: 50MG QD ORAL
     Route: 048

REACTIONS (3)
  - DEHYDRATION [None]
  - WHITE BLOOD CELL COUNT DECREASED [None]
  - PYREXIA [None]
